FAERS Safety Report 24434066 (Version 1)
Quarter: 2024Q4

REPORT INFORMATION
  Report Type: Spontaneous
  Country: CN (occurrence: CN)
  Receive Date: 20241014
  Receipt Date: 20241014
  Transmission Date: 20250115
  Serious: Yes (Other)
  Sender: ROCHE
  Company Number: CN-ROCHE-10000101760

PATIENT
  Age: 54 Year
  Sex: Female
  Weight: 56.5 kg

DRUGS (2)
  1. PERTUZUMAB [Suspect]
     Active Substance: PERTUZUMAB
     Indication: Breast cancer
     Dosage: ACCORDING TO SOURCE, THE DATE ^ON DECEMBER 18, 2024, THE PATIENT WAS GIVEN DUAL-TARGET MAINTENANCE T
     Route: 042
     Dates: start: 20231218, end: 20240527
  2. TRASTUZUMAB [Suspect]
     Active Substance: TRASTUZUMAB
     Indication: Breast cancer
     Dosage: ACCORDING TO SOURCE , THE DATE ^ON DECEMBER 18, 2024, THE PATIENT WAS GIVEN DUAL-TARGET MAINTENANCE
     Route: 042
     Dates: start: 20231218, end: 20240527

REACTIONS (2)
  - Myocardial injury [Recovering/Resolving]
  - Chest discomfort [Recovering/Resolving]

NARRATIVE: CASE EVENT DATE: 20240618
